FAERS Safety Report 19194812 (Version 1)
Quarter: 2021Q2

REPORT INFORMATION
  Report Type: Spontaneous
  Country: US (occurrence: US)
  Receive Date: 20210429
  Receipt Date: 20210429
  Transmission Date: 20210717
  Serious: Yes (Other)
  Sender: FDA-Public Use
  Company Number: None

PATIENT
  Age: 50 Year
  Sex: Female
  Weight: 79 kg

DRUGS (1)
  1. RITUXAN [Suspect]
     Active Substance: RITUXIMAB
     Indication: RHEUMATOID ARTHRITIS
     Dosage: ?          OTHER FREQUENCY:1ST DOSE;?
     Route: 041
     Dates: start: 20210412

REACTIONS (7)
  - Ear pain [None]
  - Vomiting [None]
  - Abdominal pain upper [None]
  - Back pain [None]
  - Discomfort [None]
  - Dysphagia [None]
  - Dyspepsia [None]

NARRATIVE: CASE EVENT DATE: 20210412
